FAERS Safety Report 4807710-2 (Version None)
Quarter: 2005Q4

REPORT INFORMATION
  Report Type: 
  Country: None (occurrence: None)
  Receive Date: 20051024
  Receipt Date: 20051014
  Transmission Date: 20060501
  Serious: Yes (Hospitalization)
  Sender: FDA-Public Use
  Company Number: IT-ABBOTT-05P-083-0313971-00

PATIENT
  Age: 43 Year
  Sex: Male

DRUGS (6)
  1. FULCRO [Suspect]
     Indication: DYSLIPIDAEMIA
     Route: 048
     Dates: start: 20050401, end: 20050910
  2. INDOBUFEN SODIUM [Concomitant]
     Indication: PRINZMETAL ANGINA
     Dates: start: 20050401, end: 20050910
  3. RAMIPRIL [Concomitant]
     Indication: HYPERTENSION
     Dates: start: 20050401, end: 20050910
  4. DILTIAZEM HYDROCHLORIDE [Concomitant]
     Indication: DRUG USE FOR UNKNOWN INDICATION
  5. OMEGA-3 TRIGLYCERIDES [Concomitant]
     Indication: DRUG USE FOR UNKNOWN INDICATION
  6. RANITIDINE HYDROCHLORIDE [Concomitant]
     Indication: DRUG USE FOR UNKNOWN INDICATION

REACTIONS (5)
  - ALANINE AMINOTRANSFERASE INCREASED [None]
  - ASPARTATE AMINOTRANSFERASE INCREASED [None]
  - ERYTHEMA MULTIFORME [None]
  - GAMMA-GLUTAMYLTRANSFERASE INCREASED [None]
  - JAUNDICE [None]
